FAERS Safety Report 10475915 (Version 2)
Quarter: 2015Q1

REPORT INFORMATION
  Report Type: Spontaneous
  Country: US (occurrence: US)
  Receive Date: 20140925
  Receipt Date: 20150117
  Transmission Date: 20150720
  Serious: Yes (Other)
  Sender: FDA-Public Use
  Company Number: PHEH2014US018824

PATIENT
  Sex: Female

DRUGS (5)
  1. FANAPT [Suspect]
     Active Substance: ILOPERIDONE
     Indication: PRODUCT USED FOR UNKNOWN INDICATION
     Route: 065
  2. SEROQUEL [Suspect]
     Active Substance: QUETIAPINE FUMARATE
     Dosage: 400 MG, UNK
     Route: 065
  3. DEPAKOTE [Suspect]
     Active Substance: DIVALPROEX SODIUM
     Indication: PRODUCT USED FOR UNKNOWN INDICATION
     Route: 065
  4. LATUDA [Suspect]
     Active Substance: LURASIDONE HYDROCHLORIDE
     Indication: PRODUCT USED FOR UNKNOWN INDICATION
     Route: 065
  5. SEROQUEL [Suspect]
     Active Substance: QUETIAPINE FUMARATE
     Indication: PRODUCT USED FOR UNKNOWN INDICATION
     Route: 065

REACTIONS (16)
  - Contusion [Recovered/Resolved]
  - Pharyngeal oedema [Unknown]
  - Heart rate increased [Unknown]
  - Head injury [Unknown]
  - Trismus [Unknown]
  - Blindness [Unknown]
  - Face injury [Unknown]
  - Thrombosis [Recovered/Resolved]
  - Deafness [Unknown]
  - Thirst [Unknown]
  - Weight decreased [Unknown]
  - Fall [Unknown]
  - Cerebrovascular accident [Unknown]
  - Pruritus [Recovered/Resolved]
  - Weight increased [Unknown]
  - Nausea [Unknown]
